FAERS Safety Report 25607730 (Version 2)
Quarter: 2025Q3

REPORT INFORMATION
  Report Type: Report from Study
  Country: US (occurrence: US)
  Receive Date: 20250725
  Receipt Date: 20250801
  Transmission Date: 20251020
  Serious: No
  Sender: ABBVIE
  Company Number: US-ABBVIE-6388166

PATIENT
  Age: 83 Year
  Sex: Male
  Weight: 72.574 kg

DRUGS (2)
  1. SKYRIZI [Suspect]
     Active Substance: RISANKIZUMAB-RZAA
     Indication: Crohn^s disease
     Route: 042
     Dates: start: 20250307, end: 20250502
  2. TYLENOL [Concomitant]
     Active Substance: ACETAMINOPHEN
     Indication: Toothache

REACTIONS (3)
  - Toothache [Not Recovered/Not Resolved]
  - Rash macular [Recovering/Resolving]
  - Tooth infection [Not Recovered/Not Resolved]

NARRATIVE: CASE EVENT DATE: 20250701
